FAERS Safety Report 10599830 (Version 1)
Quarter: 2014Q4

REPORT INFORMATION
  Report Type: Spontaneous
  Country: IT (occurrence: IT)
  Receive Date: 20141121
  Receipt Date: 20141121
  Transmission Date: 20150529
  Serious: Yes (Other)
  Sender: FDA-Public Use
  Company Number: IT-BAXTER-2014BAX068104

PATIENT
  Age: 35 Week
  Sex: Male
  Weight: 1.15 kg

DRUGS (1)
  1. GLUCOSIO BAXTER S.P.A. 10% [Suspect]
     Active Substance: DEXTROSE
     Indication: INSULIN RESISTANCE
     Route: 042

REACTIONS (5)
  - Hyperglycaemia [Unknown]
  - Insulin C-peptide increased [Unknown]
  - Hyperinsulinism [Unknown]
  - Hypoglycaemia [Unknown]
  - Hypertension [Recovering/Resolving]
